FAERS Safety Report 23677206 (Version 3)
Quarter: 2024Q2

REPORT INFORMATION
  Report Type: Spontaneous
  Country: US (occurrence: US)
  Receive Date: 20240327
  Receipt Date: 20240611
  Transmission Date: 20240715
  Serious: No
  Sender: FDA-Public Use
  Company Number: US-PFIZER INC-202400068257

PATIENT
  Age: 16 Year
  Sex: Male
  Weight: 52.16 kg

DRUGS (1)
  1. GENOTROPIN [Suspect]
     Active Substance: SOMATROPIN
     Dosage: UNK

REACTIONS (3)
  - Device mechanical issue [Unknown]
  - Needle issue [Unknown]
  - Device leakage [Unknown]
